FAERS Safety Report 23946013 (Version 3)
Quarter: 2024Q2

REPORT INFORMATION
  Report Type: Spontaneous
  Country: PL (occurrence: PL)
  Receive Date: 20240606
  Receipt Date: 20240626
  Transmission Date: 20240716
  Serious: Yes (Hospitalization, Other)
  Sender: FDA-Public Use
  Company Number: PL-009507513-2406POL000157

PATIENT
  Sex: Male

DRUGS (1)
  1. KEYTRUDA [Suspect]
     Active Substance: PEMBROLIZUMAB
     Dosage: UNK
     Dates: start: 20240222

REACTIONS (7)
  - Bronchitis [Recovering/Resolving]
  - Malignant neoplasm progression [Unknown]
  - Skin exfoliation [Recovering/Resolving]
  - Parosmia [Not Recovered/Not Resolved]
  - Erythema [Recovering/Resolving]
  - Asthenia [Unknown]
  - Dysgeusia [Not Recovered/Not Resolved]

NARRATIVE: CASE EVENT DATE: 20240101
